FAERS Safety Report 10205365 (Version 1)
Quarter: 2014Q2

REPORT INFORMATION
  Report Type: Spontaneous
  Country: US (occurrence: None)
  Receive Date: 20140527
  Receipt Date: 20140527
  Transmission Date: 20141212
  Serious: Yes (Hospitalization)
  Sender: FDA-Public Use
  Company Number: None

PATIENT
  Age: 44 Year
  Sex: Female

DRUGS (8)
  1. AMPHOTERICIN B [Suspect]
     Indication: MENINGITIS
     Route: 042
     Dates: start: 20120213, end: 20120224
  2. ACETAMINOPHEN [Concomitant]
  3. DIPHENHYDRAMINE [Concomitant]
  4. FLUCYTOSINE [Concomitant]
  5. HEPARIN [Concomitant]
  6. HYDROCORTISONE [Concomitant]
  7. ONDANSETRON [Concomitant]
  8. OXYCODONE [Concomitant]

REACTIONS (2)
  - Chest pain [None]
  - Infusion related reaction [None]
